FAERS Safety Report 11378946 (Version 1)
Quarter: 2015Q3

REPORT INFORMATION
  Report Type: Spontaneous
  Country: US (occurrence: US)
  Receive Date: 20150813
  Receipt Date: 20150813
  Transmission Date: 20151125
  Serious: Yes (Death)
  Sender: FDA-Public Use
  Company Number: US-CELGENE-USA-2015080993

PATIENT
  Age: 15 Year
  Sex: Female

DRUGS (8)
  1. CISPLATIN. [Concomitant]
     Active Substance: CISPLATIN
     Indication: SQUAMOUS CELL CARCINOMA
     Route: 065
  2. MUPIROCIN. [Concomitant]
     Active Substance: MUPIROCIN
     Indication: ANOGENITAL WARTS
     Route: 065
  3. IMMUNOGLOBULIN [Concomitant]
     Active Substance: HUMAN IMMUNOGLOBULIN G
     Indication: PRODUCT USED FOR UNKNOWN INDICATION
     Route: 041
  4. IMIQUIMOD. [Concomitant]
     Active Substance: IMIQUIMOD
     Indication: ANOGENITAL WARTS
     Route: 065
  5. 5-FLUOROURACIL [Concomitant]
     Active Substance: FLUOROURACIL
     Indication: ANOGENITAL WARTS
     Route: 065
  6. CETUXIMAB [Concomitant]
     Active Substance: CETUXIMAB
     Indication: SQUAMOUS CELL CARCINOMA
     Route: 065
  7. MITOMYCIN C [Concomitant]
     Active Substance: MITOMYCIN
     Indication: SQUAMOUS CELL CARCINOMA
  8. REVLIMID [Suspect]
     Active Substance: LENALIDOMIDE
     Indication: SQUAMOUS CELL CARCINOMA
     Route: 065

REACTIONS (2)
  - Drug administered to patient of inappropriate age [Unknown]
  - Squamous cell carcinoma [Fatal]
